FAERS Safety Report 24116351 (Version 3)
Quarter: 2024Q3

REPORT INFORMATION
  Report Type: Spontaneous
  Country: JP (occurrence: JP)
  Receive Date: 20240722
  Receipt Date: 20240920
  Transmission Date: 20241017
  Serious: Yes (Death)
  Sender: NOVO NORDISK
  Company Number: JP-NOVOPROD-1255266

PATIENT
  Age: 18 Year
  Sex: Female
  Weight: 28.4 kg

DRUGS (5)
  1. SOGROYA [Suspect]
     Active Substance: SOMAPACITAN-BECO
     Indication: Growth hormone deficiency
     Dosage: 1.5 MG, QW
     Route: 058
     Dates: start: 20231218, end: 20240610
  2. LEVOTHYROXINE [Concomitant]
     Active Substance: LEVOTHYROXINE\LEVOTHYROXINE SODIUM
     Indication: Central hypothyroidism
     Dosage: 7.5 ?G, QD
     Route: 048
     Dates: start: 201403
  3. ZADITEN [Concomitant]
     Active Substance: KETOTIFEN FUMARATE
     Indication: Rhinitis allergic
     Dosage: 1.5 G, QD
     Route: 048
  4. PRANLUKAST [Concomitant]
     Active Substance: PRANLUKAST
     Indication: Rhinitis allergic
     Dosage: 1.7 G, QD
     Route: 048
  5. ESTRADIOL [Suspect]
     Active Substance: ESTRADIOL
     Indication: Central hypothyroidism
     Dosage: 0.09 MG, QD
     Route: 062
     Dates: start: 20231218

REACTIONS (2)
  - Hypoglycaemia [Fatal]
  - Illness [Unknown]

NARRATIVE: CASE EVENT DATE: 20240609
